FAERS Safety Report 18267018 (Version 5)
Quarter: 2020Q4

REPORT INFORMATION
  Report Type: Spontaneous
  Country: GR (occurrence: GR)
  Receive Date: 20200915
  Receipt Date: 20201007
  Transmission Date: 20210113
  Serious: Yes (Other)
  Sender: FDA-Public Use
  Company Number: GR-ROCHE-2677793

PATIENT
  Age: 72 Year
  Sex: Male

DRUGS (13)
  1. CLEXANE [Concomitant]
     Active Substance: ENOXAPARIN SODIUM
     Dosage: 0.4 1X1
  2. LANTUS [Concomitant]
     Active Substance: INSULIN GLARGINE
     Dosage: 10 X1
  3. SEROPRAM [Concomitant]
     Dosage: 20
  4. LOPRESSOR [Concomitant]
     Active Substance: METOPROLOL TARTRATE
     Dosage: 1/2X2
  5. CRESTOR [Concomitant]
     Active Substance: ROSUVASTATIN CALCIUM
     Dosage: 20
  6. CYCLOPHOSPHAMIDE. [Suspect]
     Active Substance: CYCLOPHOSPHAMIDE
     Indication: PRODUCT USED FOR UNKNOWN INDICATION
     Route: 065
  7. PLAVIX [Concomitant]
     Active Substance: CLOPIDOGREL BISULFATE
  8. FOSAMAX [Concomitant]
     Active Substance: ALENDRONATE SODIUM
     Dosage: 1/2X2
  9. TAMSOL [Concomitant]
     Dosage: 0.4X1
  10. MABTHERA [Suspect]
     Active Substance: RITUXIMAB
     Indication: CENTRAL NERVOUS SYSTEM VASCULITIS
     Route: 065
     Dates: start: 20191212
  11. SIRODROL [Concomitant]
     Dosage: 4CC X1
  12. PANTOSEC [Concomitant]
     Dosage: 1/2X2
  13. ACTRAPID [Concomitant]
     Active Substance: INSULIN HUMAN

REACTIONS (7)
  - Bedridden [Unknown]
  - Unevaluable event [Unknown]
  - Cerebrovascular accident [Not Recovered/Not Resolved]
  - Off label use [Unknown]
  - Nervous system disorder [Unknown]
  - Intentional product use issue [Unknown]
  - General physical health deterioration [Unknown]

NARRATIVE: CASE EVENT DATE: 20191212
